FAERS Safety Report 10252486 (Version 1)
Quarter: 2014Q2

REPORT INFORMATION
  Report Type: Spontaneous
  Country: US (occurrence: None)
  Receive Date: 20140619
  Receipt Date: 20140619
  Transmission Date: 20141212
  Serious: No
  Sender: FDA-Public Use
  Company Number: 14AE027

PATIENT
  Sex: Male

DRUGS (2)
  1. IBUPROFEN [Suspect]
     Indication: BACK PAIN
     Dosage: 3 BY MOUTH/DAILY
     Route: 048
     Dates: start: 20140608, end: 20140612
  2. IBUPROFEN [Suspect]
     Indication: ARTHRALGIA
     Dosage: 3 BY MOUTH/DAILY
     Route: 048
     Dates: start: 20140608, end: 20140612

REACTIONS (5)
  - Blood pressure increased [None]
  - Paraesthesia oral [None]
  - Hypoaesthesia oral [None]
  - Hypoaesthesia [None]
  - Paraesthesia [None]
